FAERS Safety Report 18217783 (Version 1)
Quarter: 2020Q3

REPORT INFORMATION
  Report Type: Spontaneous
  Country: US (occurrence: US)
  Receive Date: 20200831
  Receipt Date: 20200831
  Transmission Date: 20201103
  Serious: Yes (Death, Hospitalization)
  Sender: FDA-Public Use
  Company Number: None

PATIENT
  Age: 73 Year
  Sex: Male
  Weight: 83.1 kg

DRUGS (1)
  1. RIVAROXABAN (RIVAROXABAN 20MG TAB) [Suspect]
     Active Substance: RIVAROXABAN
     Indication: ATRIAL FIBRILLATION
     Dates: start: 20150316, end: 20180719

REACTIONS (5)
  - Unresponsive to stimuli [None]
  - Gastrointestinal haemorrhage [None]
  - Cerebrovascular accident [None]
  - Haemorrhage intracranial [None]
  - Transient ischaemic attack [None]

NARRATIVE: CASE EVENT DATE: 20180719
